FAERS Safety Report 8255319 (Version 2)
Quarter: 2014Q1

REPORT INFORMATION
  Report Type: Spontaneous
  Country: US (occurrence: US)
  Receive Date: 20111118
  Receipt Date: 20140224
  Transmission Date: 20141002
  Serious: Yes (Death, Hospitalization, Other)
  Sender: FDA-Public Use
  Company Number: PHHY2011US100777

PATIENT
  Age: 50 Year
  Sex: Female

DRUGS (2)
  1. BUPROPION [Suspect]
  2. METOPROLOL [Suspect]

REACTIONS (5)
  - Multi-organ failure [Fatal]
  - Cardiac arrest [Unknown]
  - Bradycardia [Unknown]
  - Hypotension [Unknown]
  - Overdose [Unknown]
